FAERS Safety Report 8946035 (Version 1)
Quarter: 2012Q4

REPORT INFORMATION
  Report Type: 
  Country: CO (occurrence: CO)
  Receive Date: 20121205
  Receipt Date: 20121205
  Transmission Date: 20130627
  Serious: Yes (Other)
  Sender: FDA-Public Use
  Company Number: CO-MYLANLABS-2012S1024543

PATIENT
  Age: 42 Year
  Sex: Male

DRUGS (9)
  1. VALPROIC ACID [Suspect]
     Indication: STATUS EPILEPTICUS
     Dosage: 1500mg loading dose
     Route: 040
  2. VALPROIC ACID [Interacting]
     Indication: STATUS EPILEPTICUS
     Route: 065
  3. PHENOBARBITAL [Interacting]
     Indication: STATUS EPILEPTICUS
     Dosage: 1400mg loading dose
     Route: 065
  4. PHENOBARBITAL [Interacting]
     Indication: STATUS EPILEPTICUS
     Dosage: 200 mg/day
     Route: 065
  5. TOPIRAMATE [Interacting]
     Indication: STATUS EPILEPTICUS
     Route: 065
  6. TOPIRAMATE [Interacting]
     Indication: STATUS EPILEPTICUS
     Route: 065
  7. LEVETIRACETAM [Concomitant]
     Indication: STATUS EPILEPTICUS
     Route: 065
  8. MIDAZOLAM [Concomitant]
     Indication: EPILEPSY
     Route: 065
  9. PHENYTOIN [Concomitant]
     Indication: EPILEPSY
     Route: 065

REACTIONS (2)
  - Hyperammonaemic encephalopathy [Recovering/Resolving]
  - Drug interaction [Recovered/Resolved]
